FAERS Safety Report 7610170-X (Version None)
Quarter: 2011Q3

REPORT INFORMATION
  Report Type: 
  Country: None (occurrence: None)
  Receive Date: 20110715
  Receipt Date: 20110711
  Transmission Date: 20111222
  Serious: Yes (Hospitalization)
  Sender: FDA-Public Use
  Company Number: US-BIOGENIDEC-2011BI025379

PATIENT
  Age: 63 Year
  Sex: Male

DRUGS (1)
  1. TYSABRI [Suspect]
     Indication: CROHN'S DISEASE
     Route: 042
     Dates: start: 20100503

REACTIONS (6)
  - PYREXIA [None]
  - COUGH [None]
  - GAIT DISTURBANCE [None]
  - STRESS FRACTURE [None]
  - PAIN IN EXTREMITY [None]
  - PARAESTHESIA [None]
